FAERS Safety Report 7840723-5 (Version None)
Quarter: 2011Q4

REPORT INFORMATION
  Report Type: 
  Country: None (occurrence: None)
  Receive Date: 20111021
  Receipt Date: 20111021
  Transmission Date: 20120403
  Serious: Yes (Hospitalization)
  Sender: FDA-Public Use
  Company Number: None

PATIENT
  Sex: Male
  Weight: 64.6 kg

DRUGS (1)
  1. CISPLATIN [Suspect]
     Dosage: 174 MG
     Dates: end: 20071105

REACTIONS (13)
  - CHILLS [None]
  - VOMITING [None]
  - ASTHENIA [None]
  - ORAL CANDIDIASIS [None]
  - NAUSEA [None]
  - ORAL PAIN [None]
  - CONSTIPATION [None]
  - PYREXIA [None]
  - DYSPHAGIA [None]
  - WHITE BLOOD CELL COUNT INCREASED [None]
  - PRODUCTIVE COUGH [None]
  - HYPOPHAGIA [None]
  - WHITE BLOOD CELL COUNT DECREASED [None]
